FAERS Safety Report 17452583 (Version 2)
Quarter: 2020Q1

REPORT INFORMATION
  Report Type: Spontaneous
  Country: US (occurrence: US)
  Receive Date: 20200224
  Receipt Date: 20200224
  Transmission Date: 20200409
  Serious: Yes (Other)
  Sender: FDA-Public Use
  Company Number: US-PFIZER INC-2020074278

PATIENT
  Age: 54 Year
  Sex: Male

DRUGS (2)
  1. MORPHINE SULFATE. [Suspect]
     Active Substance: MORPHINE SULFATE
     Dosage: UNK (FREQUENCY AND DOSE OF MORPHINE WERE INCREASED)
     Route: 042
  2. MORPHINE SULFATE. [Suspect]
     Active Substance: MORPHINE SULFATE
     Indication: PAIN
     Dosage: UNK (LOW DOSES)
     Route: 042

REACTIONS (3)
  - Condition aggravated [Recovered/Resolved]
  - Sphincter of Oddi dysfunction [Unknown]
  - Abdominal pain upper [Recovered/Resolved]
